FAERS Safety Report 9013836 (Version 1)
Quarter: 2013Q1

REPORT INFORMATION
  Report Type: Spontaneous
  Country: US (occurrence: US)
  Receive Date: 20130115
  Receipt Date: 20130115
  Transmission Date: 20140127
  Serious: Yes (Hospitalization)
  Sender: FDA-Public Use
  Company Number: US-BAYER-2013-003955

PATIENT
  Age: 35 Year
  Sex: Female
  Weight: 49.6 kg

DRUGS (5)
  1. YAZ [Suspect]
  2. ZOLOFT [Concomitant]
     Dosage: 50 MG, QD
     Route: 048
  3. ADVIL [Concomitant]
     Indication: BACK PAIN
  4. NORCO [Concomitant]
     Indication: PAIN
  5. MORPHINE [Concomitant]
     Indication: PAIN

REACTIONS (2)
  - Pulmonary embolism [None]
  - Pelvic venous thrombosis [None]
